FAERS Safety Report 8358773-1 (Version None)
Quarter: 2012Q2

REPORT INFORMATION
  Report Type: 
  Country: None (occurrence: None)
  Receive Date: 20120514
  Receipt Date: 20120502
  Transmission Date: 20120825
  Serious: Yes (Hospitalization, Other)
  Sender: FDA-Public Use
  Company Number: US-ELI_LILLY_AND_COMPANY-US201112001166

PATIENT
  Sex: Female
  Weight: 51.247 kg

DRUGS (3)
  1. FORTEO [Suspect]
     Dosage: 20 UG, QD
  2. FORTEO [Suspect]
     Dosage: 20 UG, QD
     Dates: start: 20111125
  3. FORTEO [Suspect]
     Indication: OSTEOPOROSIS
     Dosage: 20 UG, QD
     Dates: start: 20111125

REACTIONS (21)
  - CEREBROVASCULAR ACCIDENT [None]
  - INFLUENZA [None]
  - RIB FRACTURE [None]
  - CONTUSION [None]
  - DEHYDRATION [None]
  - URINARY TRACT INFECTION [None]
  - CONCUSSION [None]
  - DRUG DOSE OMISSION [None]
  - MOTOR DYSFUNCTION [None]
  - BONE PAIN [None]
  - EATING DISORDER [None]
  - DIARRHOEA [None]
  - ARTHRALGIA [None]
  - DYSKINESIA [None]
  - MUSCULOSKELETAL CHEST PAIN [None]
  - VOMITING [None]
  - MALAISE [None]
  - SKIN HAEMORRHAGE [None]
  - WEIGHT DECREASED [None]
  - FALL [None]
  - LIMB INJURY [None]
